FAERS Safety Report 6437258-3 (Version None)
Quarter: 2009Q4

REPORT INFORMATION
  Report Type: 
  Country: None (occurrence: None)
  Receive Date: 20091112
  Receipt Date: 20091103
  Transmission Date: 20100525
  Serious: Yes (Disabling)
  Sender: FDA-Public Use
  Company Number: GB-ROCHE-666374

PATIENT
  Age: 42 Year
  Sex: Female

DRUGS (17)
  1. TAMIFLU [Suspect]
     Indication: DRUG USE FOR UNKNOWN INDICATION
     Route: 065
  2. METOCLOPRAMIDE [Suspect]
     Indication: VOMITING
     Dosage: DOSE REDUCED
     Route: 065
  3. ETORICOXIB [Concomitant]
  4. CHLORPHENIRAMINE MALEATE [Concomitant]
  5. OXYCONTIN [Concomitant]
  6. OXYCODONE HCL [Concomitant]
  7. GABAPENTIN [Concomitant]
  8. AMITRIPTYLINE HYDROCHLORIDE [Concomitant]
  9. OMEPRAZOLE [Concomitant]
  10. PREDNISOLONE [Concomitant]
  11. PREMPAK-C [Concomitant]
  12. SULFASALAZINE [Concomitant]
  13. ENOXAPARIN SODIUM [Concomitant]
  14. QUININE SULPHATE [Concomitant]
  15. SENNA [Concomitant]
  16. PIZOTIFEN HYDROGEN MALATE [Concomitant]
  17. ACETAMINOPHEN [Concomitant]

REACTIONS (5)
  - COORDINATION ABNORMAL [None]
  - DYSKINESIA [None]
  - FALL [None]
  - FEEDING DISORDER [None]
  - HALLUCINATION [None]
